FAERS Safety Report 9286265 (Version 1)
Quarter: 2013Q2

REPORT INFORMATION
  Report Type: Spontaneous
  Country: CZ (occurrence: CZ)
  Receive Date: 20130513
  Receipt Date: 20130513
  Transmission Date: 20140414
  Serious: Yes (Hospitalization)
  Sender: FDA-Public Use
  Company Number: CZ-GLAXOSMITHKLINE-B0891026A

PATIENT
  Age: 66 Year
  Sex: Female
  Weight: 81 kg

DRUGS (9)
  1. PROPAFENONE [Suspect]
     Dosage: 600MG PER DAY
     Route: 065
  2. METOPROLOL [Suspect]
     Dosage: 200MG PER DAY
     Route: 065
  3. LOSARTAN [Concomitant]
     Dosage: 100MG PER DAY
     Route: 065
  4. RILMENIDINE [Concomitant]
     Route: 065
  5. FUROSEMIDE [Concomitant]
     Route: 065
  6. CAPTOPRIL [Concomitant]
     Route: 065
  7. ACETYLSALICYLIC ACID [Concomitant]
     Route: 065
  8. ISOSORBIDE MONONITRATE [Concomitant]
     Route: 065
  9. AMLODIPINE [Concomitant]
     Route: 065

REACTIONS (4)
  - Cardiac failure [Unknown]
  - Atrial fibrillation [Unknown]
  - Drug interaction [Unknown]
  - Drug level increased [Unknown]
